FAERS Safety Report 4558990-2 (Version None)
Quarter: 2005Q1

REPORT INFORMATION
  Report Type: 
  Country: None (occurrence: None)
  Receive Date: 20050121
  Receipt Date: 20050114
  Transmission Date: 20050727
  Serious: Yes (Other)
  Sender: FDA-Public Use
  Company Number: GB-ABBOTT-05P-167-0286836-00

PATIENT
  Age: 60 Year
  Sex: Male
  Weight: 110 kg

DRUGS (6)
  1. SUPRALIP [Suspect]
     Indication: HYPERLIPIDAEMIA
     Route: 048
     Dates: start: 20041019, end: 20041025
  2. ACETYLSALICYLIC ACID SRT [Concomitant]
     Indication: DRUG USE FOR UNKNOWN INDICATION
  3. FUROSEMIDE [Concomitant]
     Indication: DRUG USE FOR UNKNOWN INDICATION
  4. RAMIPRIL [Concomitant]
     Indication: DRUG USE FOR UNKNOWN INDICATION
  5. NICORANDIL [Concomitant]
     Indication: DRUG USE FOR UNKNOWN INDICATION
  6. CARBOCISTEINE [Concomitant]
     Indication: DRUG USE FOR UNKNOWN INDICATION

REACTIONS (1)
  - HALLUCINATION, VISUAL [None]
